FAERS Safety Report 11551612 (Version 2)
Quarter: 2015Q4

REPORT INFORMATION
  Report Type: Report from Study
  Country: US (occurrence: US)
  Receive Date: 20150925
  Receipt Date: 20151005
  Transmission Date: 20160304
  Serious: Yes (Other)
  Sender: FDA-Public Use
  Company Number: US-ROCHE-1638305

PATIENT

DRUGS (4)
  1. ALTEPLASE [Suspect]
     Active Substance: ALTEPLASE
     Indication: THROMBOSIS
  2. RETAVASE [Concomitant]
     Active Substance: RETEPLASE
     Indication: THROMBOSIS
  3. ALTEPLASE [Suspect]
     Active Substance: ALTEPLASE
     Indication: VENA CAVA THROMBOSIS
     Route: 065
  4. RETAVASE [Concomitant]
     Active Substance: RETEPLASE
     Indication: VENA CAVA THROMBOSIS
     Route: 065

REACTIONS (1)
  - Renal vein thrombosis [Unknown]
